FAERS Safety Report 12339103 (Version 2)
Quarter: 2016Q2

REPORT INFORMATION
  Report Type: Spontaneous
  Country: US (occurrence: US)
  Receive Date: 20160505
  Receipt Date: 20160505
  Transmission Date: 20160815
  Serious: No
  Sender: FDA-Public Use
  Company Number: US-MAYNE PHARMA-2015MYN000161

PATIENT
  Sex: Female
  Weight: 58.96 kg

DRUGS (2)
  1. LIOTHYRONINE [Suspect]
     Active Substance: LIOTHYRONINE
     Indication: AUTOIMMUNE THYROIDITIS
     Dosage: 10-15 MCG BID
     Route: 048
     Dates: start: 201510
  2. LIOTHYRONINE [Suspect]
     Active Substance: LIOTHYRONINE
     Indication: HYPOTHYROIDISM
     Dosage: 20 MCG, TID
     Route: 048
     Dates: start: 2014, end: 2014

REACTIONS (1)
  - Drug ineffective [Unknown]
